FAERS Safety Report 7753344-X (Version None)
Quarter: 2011Q3

REPORT INFORMATION
  Report Type: 
  Country: None (occurrence: None)
  Receive Date: 20110915
  Receipt Date: 20110907
  Transmission Date: 20111222
  Serious: Yes (Other)
  Sender: FDA-Public Use
  Company Number: US-NOVOPROD-331998

PATIENT
  Sex: Female
  Weight: 99.773 kg

DRUGS (1)
  1. VICTOZA [Suspect]
     Indication: TYPE 2 DIABETES MELLITUS
     Dosage: UNKNOWN
     Route: 058
     Dates: start: 20110701, end: 20110711

REACTIONS (8)
  - VOMITING [None]
  - PANCREATITIS [None]
  - DIARRHOEA [None]
  - HEPATITIS [None]
  - HEADACHE [None]
  - NAUSEA [None]
  - WEIGHT DECREASED [None]
  - ABDOMINAL PAIN UPPER [None]
